FAERS Safety Report 11584353 (Version 5)
Quarter: 2016Q3

REPORT INFORMATION
  Report Type: Report from Study
  Country: US (occurrence: US)
  Receive Date: 20151001
  Receipt Date: 20160921
  Transmission Date: 20161109
  Serious: Yes (Hospitalization)
  Sender: FDA-Public Use
  Company Number: US-009507513-1509USA014548

PATIENT
  Age: 17 Year
  Sex: Male
  Weight: 61.08 kg

DRUGS (36)
  1. DEXAMETHASONE. [Suspect]
     Active Substance: DEXAMETHASONE
     Dosage: 8.75 MG COURSE A AND B, TWICE DAILY ON DAYS 1-5
     Route: 048
     Dates: start: 20140830, end: 20140903
  2. METHOTREXATE. [Suspect]
     Active Substance: METHOTREXATE
     Dosage: 5160 MG, COURSE A AND B, OVER 3 HOURS ON DAY 1
     Route: 042
     Dates: start: 20141013
  3. CYTARABINE. [Suspect]
     Active Substance: CYTARABINE
     Dosage: 260 MG, Q12H
     Route: 042
     Dates: start: 20141016, end: 20141017
  4. DEXAMETHASONE. [Suspect]
     Active Substance: DEXAMETHASONE
     Dosage: 9 MG, COURSE A AND B, TWICE DAILY ON DAYS 1-5
     Route: 048
     Dates: start: 20140919, end: 20140923
  5. METHOTREXATE. [Suspect]
     Active Substance: METHOTREXATE
     Indication: ANAPLASTIC LARGE CELL LYMPHOMA T- AND NULL-CELL TYPES
     Dosage: 12 MG, CYCLICAL
     Route: 039
     Dates: start: 20140703, end: 20140703
  6. METHOTREXATE. [Suspect]
     Active Substance: METHOTREXATE
     Dosage: 5280 MG, COURSE A AND B, OVER 3 HOURS ON DAY 1
     Route: 042
     Dates: start: 20140919
  7. CRIZOTINIB [Suspect]
     Active Substance: CRIZOTINIB
     Indication: ANAPLASTIC LARGE CELL LYMPHOMA T- AND NULL-CELL TYPES
     Dosage: 165 MG/M2, BID (CYCLIC), ON DAYS 1-21 EVERY 21 DAYS CYCLE
     Route: 048
     Dates: start: 20140708, end: 20140816
  8. CYCLOPHOSPHAMIDE. [Suspect]
     Active Substance: CYCLOPHOSPHAMIDE
     Dosage: 348 MG, PROPHASE, OVER 15-30 MINUTES ON DAYS 1 AND 2
     Route: 042
     Dates: start: 20140805, end: 20140809
  9. CYTARABINE. [Suspect]
     Active Substance: CYTARABINE
     Dosage: 273 MG, Q12H
     Route: 042
     Dates: start: 20140716, end: 20140718
  10. HYDROCORTISONE. [Suspect]
     Active Substance: HYDROCORTISONE
     Indication: ANAPLASTIC LARGE CELL LYMPHOMA T- AND NULL-CELL TYPES
     Dosage: 12 MG, ONCE
     Route: 039
     Dates: start: 20140703, end: 20140703
  11. DOXORUBICIN HYDROCHLORIDE. [Suspect]
     Active Substance: DOXORUBICIN HYDROCHLORIDE
     Dosage: 44 MG, COURSE B, OVER 1-15 MIN ON DAYS 4 AND 5
     Route: 042
     Dates: start: 20140922, end: 20140923
  12. IFOSFAMIDE. [Suspect]
     Active Substance: IFOSFAMIDE
     Indication: ANAPLASTIC LARGE CELL LYMPHOMA T- AND NULL-CELL TYPES
     Dosage: 1456 MG DAILY
     Route: 042
     Dates: start: 20140713, end: 20140717
  13. DEXAMETHASONE. [Suspect]
     Active Substance: DEXAMETHASONE
     Dosage: UNK
  14. CRIZOTINIB [Suspect]
     Active Substance: CRIZOTINIB
     Dosage: 165 MG/M2, BID (CYCLIC), ON DAYS 1-21 EVERY 21 DAYS CYCLE
     Route: 048
     Dates: start: 20141103, end: 20141120
  15. CYCLOPHOSPHAMIDE. [Suspect]
     Active Substance: CYCLOPHOSPHAMIDE
     Indication: ANAPLASTIC LARGE CELL LYMPHOMA T- AND NULL-CELL TYPES
     Dosage: 362 MG, PROPHASE, OVER 15-30 MINUTES ON DAYS 1 AND 2
     Route: 042
     Dates: start: 20140703
  16. DEXAMETHASONE. [Suspect]
     Active Substance: DEXAMETHASONE
     Indication: ANAPLASTIC LARGE CELL LYMPHOMA T- AND NULL-CELL TYPES
     Dosage: 9 MG, PROPHASE, DAILY ON DAYS 1-2 AND TWICE DAILY ON DAYS 3-5
     Route: 048
     Dates: start: 20140703
  17. IFOSFAMIDE. [Suspect]
     Active Substance: IFOSFAMIDE
     Dosage: 1392 MG DAILY
     Route: 042
     Dates: start: 20140830, end: 20140903
  18. IFOSFAMIDE. [Suspect]
     Active Substance: IFOSFAMIDE
     Dosage: 1376 MG DAILY
     Route: 042
     Dates: start: 20141013, end: 20141017
  19. METHOTREXATE. [Suspect]
     Active Substance: METHOTREXATE
     Dosage: 5460 MG, COURSE A AND B, OVER 3 HOURS ON DAY 1
     Route: 042
     Dates: start: 20140713
  20. METHOTREXATE. [Suspect]
     Active Substance: METHOTREXATE
     Dosage: 5220 MG, COURSE A AND B, OVER 3 HOURS ON DAY 1
     Route: 042
     Dates: start: 20140805
  21. DOXORUBICIN HYDROCHLORIDE. [Suspect]
     Active Substance: DOXORUBICIN HYDROCHLORIDE
     Indication: ANAPLASTIC LARGE CELL LYMPHOMA T- AND NULL-CELL TYPES
     Dosage: 44 MG, COURSE B, OVER 1-15 MIN ON DAYS 4 AND 5
     Route: 042
     Dates: start: 20140808, end: 20140809
  22. CRIZOTINIB [Suspect]
     Active Substance: CRIZOTINIB
     Dosage: 165 MG/M2, BID (CYCLIC), ON DAYS 1-21 EVERY 21 DAYS CYCLE
     Route: 048
  23. CYCLOPHOSPHAMIDE. [Suspect]
     Active Substance: CYCLOPHOSPHAMIDE
     Dosage: 352 MG, PROPHASE, OVER 15-30 MINUTES ON DAYS 1-5 (348 MG, 5 IN 21 D) DAYS
     Route: 042
     Dates: start: 20140919, end: 20140923
  24. CYTARABINE. [Suspect]
     Active Substance: CYTARABINE
     Indication: ANAPLASTIC LARGE CELL LYMPHOMA T- AND NULL-CELL TYPES
     Dosage: 24 MG, ONCE
     Route: 039
     Dates: start: 20140703, end: 20140703
  25. VP-16 [Suspect]
     Active Substance: ETOPOSIDE
     Dosage: 179 MG, UNK
     Route: 042
     Dates: start: 20140902, end: 20140903
  26. DEXAMETHASONE. [Suspect]
     Active Substance: DEXAMETHASONE
     Dosage: 9 MG, COURSE A AND B, TWICE DAILY ON DAYS 1-5
     Route: 048
     Dates: start: 20140710, end: 20140717
  27. DEXAMETHASONE. [Suspect]
     Active Substance: DEXAMETHASONE
     Dosage: 8.75 MG COURSE A AND B, TWICE DAILY ON DAYS 1-5
     Route: 048
     Dates: start: 20140804, end: 20140808
  28. DEXAMETHASONE. [Suspect]
     Active Substance: DEXAMETHASONE
     Dosage: 8.75 MG COURSE A AND B, TWICE DAILY ON DAYS 1-5
     Route: 048
     Dates: start: 20141013, end: 20141017
  29. EMEND [Suspect]
     Active Substance: APREPITANT
  30. HYDROCORTISONE. [Suspect]
     Active Substance: HYDROCORTISONE
     Dosage: 7.5-12 MG  ON DAY 1, PROPHASE
     Route: 037
     Dates: start: 20140708, end: 20140708
  31. CYTARABINE. [Suspect]
     Active Substance: CYTARABINE
     Dosage: 261 MG, Q12H
     Route: 042
     Dates: start: 20140902, end: 20140903
  32. METHOTREXATE. [Suspect]
     Active Substance: METHOTREXATE
     Dosage: 5220 MG, COURSE A AND B, OVER 3 HOURS ON DAY 1
     Route: 042
     Dates: start: 20140830
  33. DOXORUBICIN HYDROCHLORIDE. [Suspect]
     Active Substance: DOXORUBICIN HYDROCHLORIDE
     Dosage: 1 IN 1 CYCLICAL
     Route: 042
     Dates: start: 20141106, end: 20141107
  34. CYCLOPHOSPHAMIDE. [Suspect]
     Active Substance: CYCLOPHOSPHAMIDE
     Dosage: 1 IN 1 CYCLICAL
     Route: 042
     Dates: start: 20141103, end: 20141107
  35. VP-16 [Suspect]
     Active Substance: ETOPOSIDE
     Indication: ANAPLASTIC LARGE CELL LYMPHOMA T- AND NULL-CELL TYPES
     Dosage: 182 MG, UNK
     Route: 042
     Dates: start: 20140716, end: 20140717
  36. VP-16 [Suspect]
     Active Substance: ETOPOSIDE
     Dosage: 172 MG, UNK
     Route: 042
     Dates: start: 20141016, end: 20141017

REACTIONS (5)
  - Hyponatraemia [Recovered/Resolved]
  - Stomatitis [Recovered/Resolved]
  - Oesophagitis [Recovered/Resolved]
  - Stomatitis [Recovering/Resolving]
  - Stomatitis [Recovered/Resolved]

NARRATIVE: CASE EVENT DATE: 20140719
